FAERS Safety Report 6740553-1 (Version None)
Quarter: 2010Q2

REPORT INFORMATION
  Report Type: 
  Country: None (occurrence: None)
  Receive Date: 20100525
  Receipt Date: 20100512
  Transmission Date: 20101027
  Serious: Yes (Hospitalization, Other)
  Sender: FDA-Public Use
  Company Number: PHHY2010MX31213

PATIENT
  Age: 75 Year
  Sex: Female

DRUGS (1)
  1. EXFORGE [Suspect]
     Indication: HYPERTENSION
     Dosage: 1 TABLET DAILY
     Route: 048
     Dates: start: 20090501

REACTIONS (4)
  - GALLBLADDER OPERATION [None]
  - INTESTINAL OPERATION [None]
  - OEDEMA PERIPHERAL [None]
  - RENAL SURGERY [None]
